FAERS Safety Report 10668473 (Version 1)
Quarter: 2014Q4

REPORT INFORMATION
  Report Type: Spontaneous
  Country: US (occurrence: None)
  Receive Date: 20141217
  Receipt Date: 20141217
  Transmission Date: 20150529
  Serious: No
  Sender: FDA-Public Use
  Company Number: 2014CT000127

PATIENT
  Age: 90 Year
  Sex: Male

DRUGS (8)
  1. KORLYM [Suspect]
     Active Substance: MIFEPRISTONE
     Indication: CUSHING^S SYNDROME
     Route: 048
     Dates: start: 20140806
  2. KORLYM [Suspect]
     Active Substance: MIFEPRISTONE
     Indication: ADRENAL INSUFFICIENCY
     Route: 048
     Dates: start: 20140806
  3. VITAMIN D /00107901/ [Concomitant]
     Active Substance: ERGOCALCIFEROL
  4. ASPIRIN. [Concomitant]
     Active Substance: ASPIRIN
  5. FUROSEMIDE. [Concomitant]
     Active Substance: FUROSEMIDE
  6. POTASSIUM [Concomitant]
     Active Substance: POTASSIUM
  7. METOPROLOL [Concomitant]
     Active Substance: METOPROLOL
  8. KORLYM [Suspect]
     Active Substance: MIFEPRISTONE
     Indication: OEDEMA
     Route: 048
     Dates: start: 20140806

REACTIONS (4)
  - Decreased appetite [None]
  - Nausea [None]
  - Wheelchair user [None]
  - Fatigue [None]

NARRATIVE: CASE EVENT DATE: 20140808
